FAERS Safety Report 5569736-3 (Version None)
Quarter: 2007Q4

REPORT INFORMATION
  Report Type: 
  Country: None (occurrence: None)
  Receive Date: 20071218
  Receipt Date: 20071203
  Transmission Date: 20080405
  Serious: Yes (Hospitalization)
  Sender: FDA-Public Use
  Company Number: 2007-168925-NL

PATIENT
  Age: 30 Year
  Sex: Female

DRUGS (1)
  1. MIRTAZAPINE [Suspect]
     Indication: HYPEREMESIS GRAVIDARUM
     Dosage: 6 MG/45 MG INTRAVENOUS (NOS) ORAL
     Route: 048

REACTIONS (5)
  - CAESAREAN SECTION [None]
  - DRUG EXPOSURE DURING PREGNANCY [None]
  - GLYCOSYLATED HAEMOGLOBIN INCREASED [None]
  - PRE-ECLAMPSIA [None]
  - PREMATURE LABOUR [None]
